FAERS Safety Report 26182667 (Version 2)
Quarter: 2025Q4

REPORT INFORMATION
  Report Type: Spontaneous
  Country: JP (occurrence: JP)
  Receive Date: 20251221
  Receipt Date: 20251224
  Transmission Date: 20260119
  Serious: Yes (Other)
  Sender: CSL BEHRING
  Company Number: JP-BEH-2025229267

PATIENT
  Age: 9 Decade
  Sex: Male

DRUGS (2)
  1. HIZENTRA [Suspect]
     Active Substance: HUMAN IMMUNOGLOBULIN G
     Indication: Chronic inflammatory demyelinating polyradiculoneuropathy
     Dosage: 20 G
     Route: 058
     Dates: start: 20251210, end: 20251210
  2. HIZENTRA [Suspect]
     Active Substance: HUMAN IMMUNOGLOBULIN G
     Dosage: UNK
     Route: 058
     Dates: start: 20251217, end: 20251217

REACTIONS (3)
  - Suspected drug-induced liver injury [Unknown]
  - C-reactive protein increased [Unknown]
  - Injection site erythema [Unknown]
